FAERS Safety Report 5179899-X (Version None)
Quarter: 2006Q4

REPORT INFORMATION
  Report Type: 
  Country: None (occurrence: None)
  Receive Date: 20061211
  Receipt Date: 20061123
  Transmission Date: 20070319
  Serious: Yes (Other)
  Sender: FDA-Public Use
  Company Number: 150276ISR

PATIENT
  Age: 41 Year
  Sex: Female

DRUGS (1)
  1. CISPLATIN [Suspect]
     Indication: SQUAMOUS CELL CARCINOMA
     Dosage: 5.7143 MG (40 MG,1 IN 1 WK)

REACTIONS (4)
  - COAGULOPATHY [None]
  - MICROANGIOPATHY [None]
  - OSTEONECROSIS [None]
  - THROMBOSIS [None]
